FAERS Safety Report 18117846 (Version 1)
Quarter: 2020Q3

REPORT INFORMATION
  Report Type: Other
  Country: CN (occurrence: CN)
  Receive Date: 20200806
  Receipt Date: 20200806
  Transmission Date: 20201103
  Serious: Yes (Other)
  Sender: FDA-Public Use
  Company Number: CN-ROCHE-2651531

PATIENT
  Sex: Female

DRUGS (4)
  1. PACLITAXEL. [Suspect]
     Active Substance: PACLITAXEL
     Indication: BREAST CANCER METASTATIC
     Dosage: ONCE EVERY WEEK, ADMINISTERED ON THE SAME DAY AS TRASTUZUMAB FOR 6 CYCLES IN TOTAL (3 WEEKS PER CYCL
     Route: 042
  2. TRASTUZUMAB. [Suspect]
     Active Substance: TRASTUZUMAB
     Dosage: IN THE SECOND AND THE THIRD WEEKS, 1 CYCLE EVERY 3 WEEKS
     Route: 042
  3. TRASTUZUMAB. [Suspect]
     Active Substance: TRASTUZUMAB
     Indication: BREAST CANCER METASTATIC
     Dosage: IN THE FIRST WEEK
     Route: 042
  4. GEMCITABINE. [Suspect]
     Active Substance: GEMCITABINE
     Indication: BREAST CANCER METASTATIC
     Dosage: AT DAY 1 AND DAY 8, FOR 1 HOUR (A TOTAL OF 6 CYCLES)
     Route: 042

REACTIONS (2)
  - Renal impairment [Unknown]
  - Myelosuppression [Unknown]
